FAERS Safety Report 10169868 (Version 1)
Quarter: 2014Q2

REPORT INFORMATION
  Report Type: Spontaneous
  Country: US (occurrence: US)
  Receive Date: 20140513
  Receipt Date: 20140513
  Transmission Date: 20141212
  Serious: Yes (Other)
  Sender: FDA-Public Use
  Company Number: US-BAYER-2014-068777

PATIENT
  Sex: 0

DRUGS (2)
  1. BAYER EXTRA STRENGTH ASPIRIN [Suspect]
     Dosage: UNK
     Route: 048
  2. ASCRIPTIN [Suspect]
     Indication: BACK PAIN

REACTIONS (2)
  - Haematochezia [Recovered/Resolved]
  - Abdominal discomfort [Recovered/Resolved]
